FAERS Safety Report 8225940-7 (Version None)
Quarter: 2012Q1

REPORT INFORMATION
  Report Type: 
  Country: None (occurrence: None)
  Receive Date: 20120321
  Receipt Date: 20120316
  Transmission Date: 20120608
  Serious: Yes (Other)
  Sender: FDA-Public Use
  Company Number: US-PFIZER INC-2012070078

PATIENT
  Sex: Female
  Weight: 79.365 kg

DRUGS (2)
  1. LYRICA [Suspect]
     Indication: ARTHRITIS
     Dosage: 75 MG, 4X/DAY
     Route: 048
     Dates: start: 20111201
  2. LYRICA [Suspect]
     Indication: SPONDYLITIS

REACTIONS (9)
  - GASTROOESOPHAGEAL REFLUX DISEASE [None]
  - IRRITABLE BOWEL SYNDROME [None]
  - PAIN [None]
  - DIARRHOEA [None]
  - ABDOMINAL DISTENSION [None]
  - GAIT DISTURBANCE [None]
  - CONSTIPATION [None]
  - MALAISE [None]
  - FEELING ABNORMAL [None]
